FAERS Safety Report 7998407-9 (Version None)
Quarter: 2011Q4

REPORT INFORMATION
  Report Type: 
  Country: None (occurrence: None)
  Receive Date: 20111221
  Receipt Date: 20110927
  Transmission Date: 20120403
  Serious: No
  Sender: FDA-Public Use
  Company Number: US-GLAXOSMITHKLINE-A0946187A

PATIENT
  Age: 71 Year
  Sex: Male

DRUGS (7)
  1. NAPROXEN (ALEVE) [Concomitant]
  2. DIOVAN [Concomitant]
  3. LIPITOR [Concomitant]
  4. SAW PALMETTO [Concomitant]
  5. ASPIRIN [Concomitant]
  6. LOVAZA [Suspect]
     Indication: BLOOD TRIGLYCERIDES INCREASED
     Dosage: 2CAP TWICE PER DAY
     Route: 048
     Dates: start: 20110701
  7. CENTRUM SILVER [Concomitant]

REACTIONS (1)
  - THERAPEUTIC RESPONSE UNEXPECTED [None]
